FAERS Safety Report 8229220-5 (Version None)
Quarter: 2012Q1

REPORT INFORMATION
  Report Type: 
  Country: None (occurrence: None)
  Receive Date: 20120322
  Receipt Date: 20120313
  Transmission Date: 20120608
  Serious: Yes (Hospitalization)
  Sender: FDA-Public Use
  Company Number: DE-JNJFOC-20120301165

PATIENT
  Sex: Female
  Weight: 69 kg

DRUGS (5)
  1. TORSEMIDE [Concomitant]
     Indication: CARDIAC FAILURE
  2. METOPROLOL SUCCINATE [Concomitant]
     Indication: HYPERTENSION
  3. PANTOPRAZOLE [Concomitant]
  4. JODTHYROX [Concomitant]
     Indication: HYPOTHYROIDISM
  5. XARELTO [Suspect]
     Indication: ATRIAL FIBRILLATION
     Route: 048
     Dates: start: 20120208

REACTIONS (4)
  - HAEMATOMA [None]
  - HAEMATURIA [None]
  - CYSTITIS HAEMORRHAGIC [None]
  - PYELONEPHRITIS [None]
